FAERS Safety Report 6170790-9 (Version None)
Quarter: 2009Q2

REPORT INFORMATION
  Report Type: 
  Country: None (occurrence: None)
  Receive Date: 20090428
  Receipt Date: 20090420
  Transmission Date: 20091009
  Serious: Yes (Hospitalization, Other)
  Sender: FDA-Public Use
  Company Number: CA-AMGEN-KDL342007

PATIENT
  Sex: Female
  Weight: 71.7 kg

DRUGS (11)
  1. ENBREL [Suspect]
     Indication: RHEUMATOID ARTHRITIS
     Route: 058
     Dates: start: 20031107, end: 20080121
  2. PREDNISONE TAB [Concomitant]
  3. METFORMIN HCL [Concomitant]
  4. NORVASC [Concomitant]
  5. ALLOPURINOL [Concomitant]
  6. DIGOXIN [Concomitant]
  7. MICARDIS [Concomitant]
  8. METOPROLOL [Concomitant]
  9. PANTOPRAZOLE SODIUM [Concomitant]
  10. DIDRONEL [Concomitant]
  11. METHOTREXATE [Concomitant]

REACTIONS (2)
  - HISTOPLASMOSIS [None]
  - SARCOIDOSIS [None]
